FAERS Safety Report 7815144-1 (Version None)
Quarter: 2011Q4

REPORT INFORMATION
  Report Type: 
  Country: None (occurrence: None)
  Receive Date: 20111014
  Receipt Date: 20111014
  Transmission Date: 20120403
  Serious: Yes (Other)
  Sender: FDA-Public Use
  Company Number: None

PATIENT
  Age: 11 Year
  Sex: Female
  Weight: 79.832 kg

DRUGS (3)
  1. ZOFRAN [Concomitant]
     Route: 042
  2. VINCRISTINE [Concomitant]
     Route: 042
  3. PEGASPARGASE [Suspect]
     Dosage: 4775 UNITS IV

REACTIONS (10)
  - ABNORMAL BEHAVIOUR [None]
  - PRURITUS [None]
  - DYSSTASIA [None]
  - DRUG HYPERSENSITIVITY [None]
  - WHEEZING [None]
  - FAECAL INCONTINENCE [None]
  - MENTAL STATUS CHANGES [None]
  - HYPOTENSION [None]
  - SCREAMING [None]
  - URINARY INCONTINENCE [None]
